FAERS Safety Report 8472999-8 (Version None)
Quarter: 2012Q2

REPORT INFORMATION
  Report Type: 
  Country: None (occurrence: None)
  Receive Date: 20120627
  Receipt Date: 20120620
  Transmission Date: 20120825
  Serious: Yes (Other)
  Sender: FDA-Public Use
  Company Number: US-ABBOTT-12P-163-0909395-00

PATIENT
  Sex: Male

DRUGS (1)
  1. HUMIRA [Suspect]
     Indication: COLITIS ULCERATIVE
     Dates: start: 20111001

REACTIONS (4)
  - OFF LABEL USE [None]
  - CARPAL TUNNEL SYNDROME [None]
  - COLITIS ULCERATIVE [None]
  - EPICONDYLITIS [None]
